FAERS Safety Report 11669063 (Version 1)
Quarter: 2015Q4

REPORT INFORMATION
  Report Type: Spontaneous
  Country: US (occurrence: US)
  Receive Date: 20151027
  Receipt Date: 20151027
  Transmission Date: 20160304
  Serious: No
  Sender: FDA-Public Use
  Company Number: US-ELI_LILLY_AND_COMPANY-US201004000688

PATIENT
  Age: 75 Year
  Sex: Female

DRUGS (1)
  1. FORTEO [Suspect]
     Active Substance: TERIPARATIDE
     Indication: OSTEOPOROSIS
     Dosage: 10 UG, DAILY (1/D)
     Dates: start: 201003

REACTIONS (3)
  - Injection site discolouration [Recovered/Resolved]
  - Medical device pain [Recovered/Resolved]
  - Injection site bruising [Unknown]

NARRATIVE: CASE EVENT DATE: 201003
